FAERS Safety Report 10744548 (Version 1)
Quarter: 2015Q1

REPORT INFORMATION
  Report Type: Spontaneous
  Country: US (occurrence: US)
  Receive Date: 20150128
  Receipt Date: 20150128
  Transmission Date: 20150721
  Serious: Yes (Hospitalization, Other)
  Sender: FDA-Public Use
  Company Number: US-UNITED THERAPEUTICS-UNT-2014-011592

PATIENT
  Age: 54 Year
  Sex: Female
  Weight: 71.66 kg

DRUGS (3)
  1. REMODULIN [Suspect]
     Active Substance: TREPROSTINIL
     Indication: PULMONARY ARTERIAL HYPERTENSION
     Dosage: 0.0509 ?G/KG, CONTINUING
     Route: 058
     Dates: start: 20030321
  2. COUMADIN [Concomitant]
     Active Substance: WARFARIN SODIUM
     Indication: PRODUCT USED FOR UNKNOWN INDICATION
  3. REMODULIN [Suspect]
     Active Substance: TREPROSTINIL
     Dosage: 0.0417 ?G/KG, CONTINUING
     Route: 058
     Dates: start: 20141120

REACTIONS (7)
  - Drug dose omission [Unknown]
  - Impaired healing [Unknown]
  - Device dislocation [Unknown]
  - Endotracheal intubation [Unknown]
  - Venous occlusion [Unknown]
  - Device issue [Unknown]
  - Infusion site pain [Unknown]

NARRATIVE: CASE EVENT DATE: 201411
